FAERS Safety Report 9955989 (Version 1)
Quarter: 2014Q1

REPORT INFORMATION
  Report Type: Spontaneous
  Country: US (occurrence: US)
  Receive Date: 20140304
  Receipt Date: 20140304
  Transmission Date: 20141002
  Serious: No
  Sender: FDA-Public Use
  Company Number: US-ABBVIE-13P-163-1090056-00

PATIENT
  Age: 28 Year
  Sex: Male
  Weight: 78.09 kg

DRUGS (7)
  1. HUMIRA (ABBOTT) [Suspect]
     Indication: COLITIS ULCERATIVE
     Dates: start: 2011, end: 2011
  2. HUMIRA (ABBOTT) [Suspect]
     Dosage: TWO WEEKS AFTER 160 MG DOSE
     Dates: start: 2011, end: 2011
  3. HUMIRA (ABBOTT) [Suspect]
     Dates: start: 2011
  4. LIALDA [Concomitant]
     Indication: COLITIS ULCERATIVE
  5. ZYRTEC [Concomitant]
     Indication: HYPERSENSITIVITY
  6. MERCAPTOPURINE [Concomitant]
     Indication: COLITIS ULCERATIVE
  7. PROBIOTIC [Concomitant]
     Indication: ENZYME SUPPLEMENTATION

REACTIONS (4)
  - Device malfunction [Not Recovered/Not Resolved]
  - Drug dose omission [Not Recovered/Not Resolved]
  - Injection site pain [Not Recovered/Not Resolved]
  - Injection site pain [Recovered/Resolved]
